FAERS Safety Report 4664612-2 (Version None)
Quarter: 2005Q2

REPORT INFORMATION
  Report Type: 
  Country: None (occurrence: None)
  Receive Date: 20050518
  Receipt Date: 20050330
  Transmission Date: 20051028
  Serious: Yes (Other)
  Sender: FDA-Public Use
  Company Number: DE-GLAXOSMITHKLINE-D0046250A

PATIENT
  Age: 66 Year
  Sex: Female

DRUGS (3)
  1. ELMENDOS [Suspect]
     Dosage: 100MG PER DAY
     Route: 048
     Dates: start: 20050201
  2. VALPROATE SODIUM [Concomitant]
     Route: 065
  3. CLOMIPRAMINE HCL [Concomitant]
     Route: 065

REACTIONS (1)
  - PSORIASIS [None]
